FAERS Safety Report 16881622 (Version 1)
Quarter: 2019Q4

REPORT INFORMATION
  Report Type: Report from Study
  Country: IN (occurrence: IN)
  Receive Date: 20191003
  Receipt Date: 20191003
  Transmission Date: 20200122
  Serious: Yes (Death)
  Sender: FDA-Public Use
  Company Number: IN-INCYTE CORPORATION-2019IN002110

PATIENT

DRUGS (1)
  1. JAKAVI [Suspect]
     Active Substance: RUXOLITINIB
     Indication: PRIMARY MYELOFIBROSIS
     Dosage: 5 MG, BID
     Route: 048
     Dates: start: 20190220, end: 20190928

REACTIONS (5)
  - Pain in extremity [Unknown]
  - Dizziness [Unknown]
  - Asthenia [Unknown]
  - Death [Fatal]
  - Gastric disorder [Unknown]

NARRATIVE: CASE EVENT DATE: 20190220
